FAERS Safety Report 14033610 (Version 1)
Quarter: 2017Q4

REPORT INFORMATION
  Report Type: Spontaneous
  Country: US (occurrence: None)
  Receive Date: 20171003
  Receipt Date: 20171003
  Transmission Date: 20180321
  Serious: Yes (Hospitalization)
  Sender: FDA-Public Use
  Company Number: None

PATIENT
  Age: 66 Year
  Weight: 120 kg

DRUGS (2)
  1. GEMCITABINE HYDROCHLORIDE. [Suspect]
     Active Substance: GEMCITABINE HYDROCHLORIDE
     Dates: end: 20170919
  2. CISPLATIN. [Suspect]
     Active Substance: CISPLATIN
     Dates: end: 20170919

REACTIONS (2)
  - Blood creatinine increased [None]
  - Hydronephrosis [None]

NARRATIVE: CASE EVENT DATE: 20170926
